FAERS Safety Report 8849775 (Version 6)
Quarter: 2013Q2

REPORT INFORMATION
  Report Type: Report from Study
  Country: KR (occurrence: KR)
  Receive Date: 20121019
  Receipt Date: 20130409
  Transmission Date: 20140414
  Serious: Yes (Death, Life-Threatening, Hospitalization, Other)
  Sender: FDA-Public Use
  Company Number: PHHO2012KR014273

PATIENT
  Sex: 0

DRUGS (13)
  1. AMN107 [Suspect]
     Indication: PULMONARY ARTERIAL HYPERTENSION
     Dosage: 300 MG, BID
     Route: 048
     Dates: start: 20120907, end: 20120928
  2. ZAROXOLYN [Suspect]
     Indication: OEDEMA
     Dosage: 2.5 MG, BID
     Route: 048
     Dates: start: 20120921, end: 20120928
  3. SILDENAFIL [Concomitant]
     Dosage: 25 MG, TID
  4. BOSENTAN [Concomitant]
     Dosage: 125 MG, BID
  5. DIGOXIN [Concomitant]
     Dosage: 0.25 MG, QD
  6. FUROSEMIDE [Concomitant]
     Dosage: 40 MG, BID
  7. SPIRONOLACTONE [Concomitant]
     Dosage: 25 MG, BID
  8. WARFARIN [Concomitant]
     Dosage: 5 MG, QD
  9. METFORMIN [Concomitant]
     Indication: DIABETES MELLITUS
  10. GLICLAZIDE [Concomitant]
     Indication: DIABETES MELLITUS
  11. INSULIN [Concomitant]
     Indication: DIABETES MELLITUS
  12. PREDNISOLONE [Concomitant]
     Indication: HYPOPITUITARISM
  13. LEVOTHYROXINE [Concomitant]
     Indication: HYPOPITUITARISM
     Dosage: 0.125 MG, QD

REACTIONS (7)
  - Torsade de pointes [Fatal]
  - Dyspnoea [Fatal]
  - Renal failure acute [Fatal]
  - Cardiogenic shock [Fatal]
  - Disseminated intravascular coagulation [Fatal]
  - Pulmonary oedema [Fatal]
  - Gastric ulcer haemorrhage [Fatal]
